FAERS Safety Report 8598543-2 (Version None)
Quarter: 2012Q3

REPORT INFORMATION
  Report Type: 
  Country: None (occurrence: None)
  Receive Date: 20120816
  Receipt Date: 20120813
  Transmission Date: 20120928
  Serious: Yes (Other)
  Sender: FDA-Public Use
  Company Number: DE-ROCHE-1094974

PATIENT
  Age: 83 Year
  Sex: Male

DRUGS (5)
  1. ATACAND [Concomitant]
  2. LUCENTIS [Suspect]
     Indication: PRODUCT USED FOR UNKNOWN INDICATION
     Route: 050
     Dates: start: 20120620
  3. ATENOLOL [Concomitant]
  4. FLECAINIDE ACETATE [Concomitant]
  5. ASS (GERMANY) [Concomitant]

REACTIONS (1)
  - TRANSIENT ISCHAEMIC ATTACK [None]
